FAERS Safety Report 18916528 (Version 1)
Quarter: 2021Q1

REPORT INFORMATION
  Report Type: Spontaneous
  Country: US (occurrence: US)
  Receive Date: 20210219
  Receipt Date: 20210219
  Transmission Date: 20210420
  Serious: Yes (Other)
  Sender: FDA-Public Use
  Company Number: US-TOLMAR, INC.-21US025566

PATIENT
  Age: 73 Year
  Sex: Male

DRUGS (2)
  1. ELIGARD [Suspect]
     Active Substance: LEUPROLIDE ACETATE
     Indication: PROSTATE CANCER
     Dosage: UNK
     Route: 065
  2. GONADOTROPIN?RELEASING HORMONES [Suspect]
     Active Substance: GONADORELIN
     Indication: PROSTATE CANCER
     Dosage: UNK
     Route: 065

REACTIONS (3)
  - Adrenogenital syndrome [Recovered/Resolved]
  - Blood testosterone increased [Recovered/Resolved]
  - Prostatic specific antigen increased [Recovered/Resolved]
